FAERS Safety Report 6044138-4 (Version None)
Quarter: 2009Q1

REPORT INFORMATION
  Report Type: 
  Country: None (occurrence: None)
  Receive Date: 20090120
  Receipt Date: 20090112
  Transmission Date: 20090719
  Serious: Yes (Hospitalization, Other)
  Sender: FDA-Public Use
  Company Number: HN-ELI_LILLY_AND_COMPANY-HN200812001628

PATIENT
  Age: 20 Year
  Sex: Female

DRUGS (7)
  1. HUMALOG MIX 75/25 [Suspect]
     Indication: TYPE 1 DIABETES MELLITUS
     Dosage: 50 IU, EACH MORNING
     Route: 065
  2. HUMALOG MIX 75/25 [Suspect]
     Dosage: 20 IU, OTHER
     Route: 065
  3. HUMALOG MIX 75/25 [Suspect]
     Dosage: 70 IU, EACH MORNING
     Route: 065
     Dates: start: 20081129, end: 20081202
  4. HUMALOG MIX 75/25 [Suspect]
     Dosage: 30 IU, OTHER
     Route: 065
     Dates: start: 20081129, end: 20081202
  5. HUMULIN 70/30 [Suspect]
     Indication: TYPE 1 DIABETES MELLITUS
     Dosage: 60 IU, EACH MORNING
     Route: 065
     Dates: start: 20081202
  6. HUMULIN 70/30 [Suspect]
     Dosage: 30 IU, OTHER
     Route: 065
     Dates: start: 20081202
  7. AVANDIA [Concomitant]
     Dosage: UNK, UNKNOWN
     Route: 065

REACTIONS (5)
  - DIABETIC KETOACIDOSIS [None]
  - GASTROINTESTINAL INFECTION [None]
  - HYPERGLYCAEMIA [None]
  - HYPOGLYCAEMIA [None]
  - PYREXIA [None]
